FAERS Safety Report 6415384-2 (Version None)
Quarter: 2009Q4

REPORT INFORMATION
  Report Type: 
  Country: None (occurrence: None)
  Receive Date: 20091026
  Receipt Date: 20091026
  Transmission Date: 20100525
  Serious: Yes (Death, Hospitalization)
  Sender: FDA-Public Use
  Company Number: None

PATIENT
  Sex: Female
  Weight: 58.5 kg

DRUGS (2)
  1. CARBOPLATIN [Suspect]
     Dosage: 1330 MG
  2. TAXOL [Suspect]
     Dosage: 490 MG

REACTIONS (1)
  - DYSPHAGIA [None]
